FAERS Safety Report 8059401-5 (Version None)
Quarter: 2012Q1

REPORT INFORMATION
  Report Type: 
  Country: None (occurrence: None)
  Receive Date: 20120120
  Receipt Date: 20120117
  Transmission Date: 20120608
  Serious: Yes (Hospitalization)
  Sender: FDA-Public Use
  Company Number: GB-ROCHE-1015724

PATIENT
  Age: 55 Year
  Sex: Female
  Weight: 125.3 kg

DRUGS (3)
  1. VEMURAFENIB [Suspect]
     Indication: METASTATIC MALIGNANT MELANOMA
     Route: 048
     Dates: start: 20110830
  2. PREDNISOLONE [Concomitant]
     Dates: start: 20111103, end: 20111118
  3. ACETAMINOPHEN AND CODEINE PHOSPHATE [Concomitant]
     Dosage: 8 PER TABLET
     Dates: start: 20111101

REACTIONS (2)
  - SCIATICA [None]
  - INTERVERTEBRAL DISCITIS [None]
